FAERS Safety Report 6300471-X (Version None)
Quarter: 2009Q3

REPORT INFORMATION
  Report Type: 
  Country: None (occurrence: None)
  Receive Date: 20090806
  Receipt Date: 20081020
  Transmission Date: 20100115
  Serious: No
  Sender: FDA-Public Use
  Company Number: US-ABBOTT-08P-163-0483031-00

PATIENT
  Sex: Female
  Weight: 71.732 kg

DRUGS (9)
  1. DEPAKOTE ER [Suspect]
     Indication: BIPOLAR DISORDER
     Route: 048
     Dates: start: 20080801, end: 20080805
  2. DEPAKOTE ER [Suspect]
     Route: 048
     Dates: start: 20080806, end: 20080815
  3. DEPAKOTE ER [Suspect]
     Route: 048
     Dates: start: 20080816, end: 20080921
  4. DEPAKOTE ER [Suspect]
     Dates: start: 20080921
  5. LITHIUM [Suspect]
     Indication: BIPOLAR DISORDER
     Route: 048
     Dates: start: 19750101, end: 20080816
  6. LEVOTHYROXINE SODIUM [Concomitant]
     Indication: HYPOTHYROIDISM
     Route: 048
  7. CARVEDILOL [Concomitant]
     Indication: CARDIOMYOPATHY
     Route: 048
  8. FUROSEMIDE [Concomitant]
     Indication: CARDIOMYOPATHY
     Route: 048
  9. JUICE PLUS [Concomitant]
     Indication: ROUTINE HEALTH MAINTENANCE
     Route: 048

REACTIONS (7)
  - DRUG DISPENSING ERROR [None]
  - DRUG LEVEL BELOW THERAPEUTIC [None]
  - EUPHORIC MOOD [None]
  - FEELING ABNORMAL [None]
  - INCREASED APPETITE [None]
  - RENAL DISORDER [None]
  - THIRST [None]
